FAERS Safety Report 5689104-3 (Version None)
Quarter: 2008Q1

REPORT INFORMATION
  Report Type: 
  Country: None (occurrence: None)
  Receive Date: 20080331
  Receipt Date: 20080319
  Transmission Date: 20080703
  Serious: Yes (Other)
  Sender: FDA-Public Use
  Company Number: JP-SANOFI-SYNTHELABO-A01200802952

PATIENT
  Sex: Female
  Weight: 50 kg

DRUGS (6)
  1. BAYMYCARD [Concomitant]
     Indication: HYPERTENSION
     Route: 048
     Dates: start: 20070604
  2. NU-LOTAN [Concomitant]
     Indication: HYPERTENSION
     Dosage: 50 MG
     Route: 048
     Dates: start: 20070516
  3. TAKEPRON OD [Concomitant]
     Indication: GASTRITIS
     Dosage: 15 MG
     Route: 048
     Dates: start: 20070516
  4. LIPITOR [Concomitant]
     Indication: HYPERLIPIDAEMIA
     Dosage: 10 MG
     Route: 048
     Dates: start: 20070516
  5. ASPIRIN [Concomitant]
     Indication: ANGINA PECTORIS
     Dosage: 100 MG
     Route: 048
     Dates: start: 20070516
  6. PLAVIX [Suspect]
     Indication: ANGINA PECTORIS
     Route: 048
     Dates: start: 20070807, end: 20080222

REACTIONS (1)
  - HYPOPROTEINAEMIA [None]
